FAERS Safety Report 21042023 (Version 2)
Quarter: 2022Q3

REPORT INFORMATION
  Report Type: Report from Study
  Country: US (occurrence: US)
  Receive Date: 20220705
  Receipt Date: 20220708
  Transmission Date: 20221027
  Serious: No
  Sender: FDA-Public Use
  Company Number: US-NOVARTISTESTPH-NVSC2022US152143

PATIENT
  Sex: Male

DRUGS (1)
  1. KESIMPTA [Suspect]
     Active Substance: OFATUMUMAB
     Indication: Multiple sclerosis
     Dosage: (INJECT 1 PEN (20MG) MONTHLY STARTING AT WEEK 4)
     Route: 058

REACTIONS (3)
  - Chills [Unknown]
  - Fatigue [Unknown]
  - Vomiting [Unknown]
